FAERS Safety Report 8036293-1 (Version None)
Quarter: 2012Q1

REPORT INFORMATION
  Report Type: 
  Country: None (occurrence: None)
  Receive Date: 20120111
  Receipt Date: 20120106
  Transmission Date: 20120608
  Serious: Yes (Other)
  Sender: FDA-Public Use
  Company Number: PHHY2011CA93074

PATIENT
  Sex: Female

DRUGS (3)
  1. GILENYA [Suspect]
     Indication: RELAPSING-REMITTING MULTIPLE SCLEROSIS
     Dosage: 0.5 MG, QD
     Route: 048
     Dates: start: 20110818, end: 20111103
  2. SYNTHROID [Concomitant]
     Dosage: 0.100 MG, UNK
  3. SYNTHROID [Concomitant]
     Dosage: 0.112 MG, UNK

REACTIONS (2)
  - TREMOR [None]
  - PALPITATIONS [None]
